FAERS Safety Report 17450275 (Version 1)
Quarter: 2020Q1

REPORT INFORMATION
  Report Type: Spontaneous
  Country: FR (occurrence: FR)
  Receive Date: 20200224
  Receipt Date: 20200224
  Transmission Date: 20200409
  Serious: Yes (Hospitalization, Other)
  Sender: FDA-Public Use
  Company Number: FR-SA-2020SA046006

PATIENT
  Age: 41 Year
  Sex: Female
  Weight: 55 kg

DRUGS (17)
  1. BOOSTRIX TETRA [Concomitant]
     Active Substance: DIPHTHERIA AND TETANUS TOXOIDS AND ACELLULAR PERTUSSIS ADSORBED AND INACTIVATED POLIOVIRUS VACCINE
  2. RENVELA [Concomitant]
     Active Substance: SEVELAMER CARBONATE
  3. MIMPARA [Concomitant]
     Active Substance: CINACALCET HYDROCHLORIDE
  4. OMEPRAZOLE. [Concomitant]
     Active Substance: OMEPRAZOLE
  5. OROCAL VITAMINE D3 500 MG/200 U.I., COMPRIM? ? SUCER [Concomitant]
     Active Substance: CALCIUM CARBONATE\CHOLECALCIFEROL
  6. PARACETAMOL [Concomitant]
     Active Substance: ACETAMINOPHEN
  7. ZYMAD [Concomitant]
     Active Substance: CHOLECALCIFEROL
  8. LOVENOX [Concomitant]
     Active Substance: ENOXAPARIN SODIUM
  9. EMLA [Concomitant]
     Active Substance: LIDOCAINE\PRILOCAINE
  10. KAYEXALATE [Concomitant]
     Active Substance: SODIUM POLYSTYRENE SULFONATE
  11. APROVEL [Concomitant]
     Active Substance: IRBESARTAN
  12. FERINJECT [Concomitant]
     Active Substance: FERRIC CARBOXYMALTOSE
  13. LASILIX SPECIAL [FUROSEMIDE] [Concomitant]
     Active Substance: FUROSEMIDE
  14. RIFINAH [Suspect]
     Active Substance: ISONIAZID\RIFAMPIN
     Indication: ANTIBIOTIC PROPHYLAXIS
     Route: 048
     Dates: start: 20200124, end: 20200127
  15. UN ALFA [Concomitant]
     Active Substance: ALFACALCIDOL
  16. BISOCE [Concomitant]
     Active Substance: BISOPROLOL
  17. ARANESP [Concomitant]
     Active Substance: DARBEPOETIN ALFA

REACTIONS (1)
  - Seizure [Recovered/Resolved]

NARRATIVE: CASE EVENT DATE: 20200127
